FAERS Safety Report 8921811 (Version 2)
Quarter: 2012Q4

REPORT INFORMATION
  Report Type: 
  Country: JP (occurrence: JP)
  Receive Date: 20121121
  Receipt Date: 20121221
  Transmission Date: 20130627
  Serious: Yes (Other)
  Sender: FDA-Public Use
  Company Number: JP-PFIZER INC-2012290307

PATIENT
  Age: 55 Year
  Sex: Female

DRUGS (2)
  1. LYRICA [Suspect]
     Indication: DIABETIC PERIPHERAL NEUROPATHY
     Dosage: 150 mg, 2x/day
     Route: 048
     Dates: start: 201211
  2. INSULIN [Concomitant]
     Indication: DIABETES MELLITUS
     Dosage: UNK
     Route: 058

REACTIONS (3)
  - Loss of consciousness [Unknown]
  - Blood glucose decreased [Unknown]
  - Dizziness [Unknown]
